FAERS Safety Report 7374197-8 (Version None)
Quarter: 2011Q1

REPORT INFORMATION
  Report Type: 
  Country: None (occurrence: None)
  Receive Date: 20110325
  Receipt Date: 20110310
  Transmission Date: 20110831
  Serious: Yes (Hospitalization)
  Sender: FDA-Public Use
  Company Number: RU-JNJFOC-20050502741

PATIENT
  Sex: Male
  Weight: 82 kg

DRUGS (6)
  1. INFLIXIMAB [Suspect]
     Indication: ANKYLOSING SPONDYLITIS
     Route: 042
  2. NIMESULIDE [Concomitant]
     Route: 048
  3. NIMESULIDE [Concomitant]
     Route: 048
  4. INFLIXIMAB [Suspect]
     Route: 042
  5. INFLIXIMAB [Suspect]
     Route: 042
  6. NSAID [Concomitant]
     Route: 065

REACTIONS (4)
  - ORAL CANDIDIASIS [None]
  - SJOGREN'S SYNDROME [None]
  - PSORIASIS [None]
  - DERMATITIS PSORIASIFORM [None]
